FAERS Safety Report 16444470 (Version 1)
Quarter: 2019Q3

REPORT INFORMATION
  Report Type: Spontaneous
  Country: US (occurrence: US)
  Receive Date: 20190616
  Receipt Date: 20190616
  Transmission Date: 20191004
  Serious: No
  Sender: FDA-Public Use
  Company Number: None

PATIENT
  Age: 25 Year
  Sex: Female
  Weight: 81 kg

DRUGS (2)
  1. LEAVE ME BE / LEAVE IN CONDITIONER [Suspect]
     Active Substance: CANNABIDIOL\CANNABIS SATIVA SEED OIL
     Indication: HAIR TEXTURE ABNORMAL
     Dosage: ?          OTHER FREQUENCY:TWICE WEEK;OTHER ROUTE:IN HAIR?
     Dates: start: 20190519, end: 20190614
  2. ELIXIR / CBD OIL TREATMENT [Suspect]
     Active Substance: CANNABIDIOL\CANNABIS SATIVA SEED OIL
     Indication: HAIR TEXTURE ABNORMAL
     Dosage: ?          OTHER FREQUENCY:TWICE WEEK;OTHER ROUTE:IN HAIR?
     Dates: start: 20190519, end: 20190614

REACTIONS (2)
  - Treatment failure [None]
  - Condition aggravated [None]

NARRATIVE: CASE EVENT DATE: 20190519
